FAERS Safety Report 5093312-2 (Version None)
Quarter: 2006Q3

REPORT INFORMATION
  Report Type: 
  Country: None (occurrence: None)
  Receive Date: 20060828
  Receipt Date: 20060816
  Transmission Date: 20061208
  Serious: Yes (Hospitalization, Other)
  Sender: FDA-Public Use
  Company Number: GXKR2006GB04890

PATIENT
  Age: 67 Year
  Sex: Male

DRUGS (7)
  1. ASPIRIN [Suspect]
     Indication: MYOCARDIAL INFARCTION
     Dosage: 300 MG, ORAL
     Route: 048
  2. HEPARIN [Suspect]
     Indication: MYOCARDIAL INFARCTION
     Dosage: 5000, INTRAVENOUS
     Route: 042
  3. ENOXAPARIN(ENOXAPARIN, HEPARIN-FRACTION) [Suspect]
     Indication: MYOCARDIAL INFARCTION
     Dosage: 70 MG, Q12H, SUBCUTANEOUS
     Route: 058
  4. TENECTEPLASE(TENECTEPLASE) [Suspect]
     Indication: MYOCARDIAL INFARCTION
     Dosage: 8000, INTRAVENOUS
     Route: 042
  5. NITRATES(NITRATES) [Suspect]
     Indication: CHEST PAIN
     Dosage: INTRAVENOUS
     Route: 042
  6. DOXAZOSIN (DOXAZOSIN) [Concomitant]
  7. LOSARTAN POTASSIUM [Concomitant]

REACTIONS (7)
  - ABDOMINAL PAIN UPPER [None]
  - CHEST PAIN [None]
  - DRUG INEFFECTIVE [None]
  - HAEMATEMESIS [None]
  - MYOCARDIAL INFARCTION [None]
  - OESOPHAGEAL HAEMORRHAGE [None]
  - OESOPHAGEAL PERFORATION [None]
